FAERS Safety Report 8924371 (Version 1)
Quarter: 2012Q4

REPORT INFORMATION
  Report Type: 
  Country: US (occurrence: US)
  Receive Date: 20121126
  Receipt Date: 20121126
  Transmission Date: 20130627
  Serious: Yes (Other)
  Sender: FDA-Public Use
  Company Number: US-PFIZER INC-2012292968

PATIENT
  Age: 61 Year
  Sex: Female

DRUGS (8)
  1. CHANTIX [Suspect]
     Dosage: 0.5 mg, 2x/day
     Route: 048
  2. CHANTIX [Suspect]
     Dosage: 1 mg, 2x/day after meals for 12 weeks
     Route: 048
  3. TRAZODONE [Concomitant]
     Dosage: 50 mg, 1x/day
     Route: 048
  4. TIOTROPIUM BROMIDE [Concomitant]
     Dosage: 18 ug, 1x/day
  5. SYMBICORT [Concomitant]
     Dosage: 160-4.5 mcg/actuation, inhale 2 puffs by Inhalation 2x/day
     Route: 055
  6. ALBUTEROL SULFATE [Concomitant]
     Dosage: 2.5 mg /3 mL (0.083%) every 8 hours
     Route: 055
  7. ALBUTEROL SULFATE [Concomitant]
     Dosage: 90 ug, 2 puffs by Inhalation route every 8 hrs as needed
     Route: 055
  8. LISINOPRIL [Concomitant]
     Dosage: 40 mg, 1x/day
     Route: 048

REACTIONS (10)
  - Infective exacerbation of chronic obstructive airways disease [Unknown]
  - Haematuria [Unknown]
  - Essential hypertension [Unknown]
  - Chest pain [Unknown]
  - Chronic obstructive pulmonary disease [Recovering/Resolving]
  - Pollakiuria [Unknown]
  - Nocturia [Unknown]
  - Bronchitis [Unknown]
  - Sleep disorder [Unknown]
  - Cardiac disorder [Unknown]
